FAERS Safety Report 16626206 (Version 1)
Quarter: 2019Q3

REPORT INFORMATION
  Report Type: Spontaneous
  Country: CO (occurrence: CO)
  Receive Date: 20190724
  Receipt Date: 20190724
  Transmission Date: 20191004
  Serious: Yes (Other)
  Sender: FDA-Public Use
  Company Number: CO-SA-2019SA199008

PATIENT
  Age: 33 Year
  Sex: Female

DRUGS (5)
  1. TACROLIMUS. [Concomitant]
     Active Substance: TACROLIMUS
     Indication: RENAL TRANSPLANT
  2. THYMOGLOBULIN [Suspect]
     Active Substance: LAPINE T-LYMPHOCYTE IMMUNE GLOBULIN
     Indication: SOLID ORGAN TRANSPLANT
     Dosage: 50 MG, QD
     Route: 042
     Dates: start: 201902
  3. RANITIDINE. [Concomitant]
     Active Substance: RANITIDINE
     Indication: RENAL TRANSPLANT
  4. METHYLPREDNISOLONE. [Concomitant]
     Active Substance: METHYLPREDNISOLONE
     Indication: RENAL TRANSPLANT
     Dosage: 50 MG, QD
     Dates: start: 201902
  5. PRAZOSIN. [Concomitant]
     Active Substance: PRAZOSIN
     Indication: RENAL TRANSPLANT

REACTIONS (3)
  - Hypertensive crisis [Recovered/Resolved]
  - Oxygen saturation decreased [Recovered/Resolved]
  - Dyspnoea [Recovered/Resolved]

NARRATIVE: CASE EVENT DATE: 201902
